FAERS Safety Report 9601575 (Version 1)
Quarter: 2013Q4

REPORT INFORMATION
  Report Type: Spontaneous
  Country: US (occurrence: US)
  Receive Date: 20131007
  Receipt Date: 20131007
  Transmission Date: 20140711
  Serious: No
  Sender: FDA-Public Use
  Company Number: US-009507513-1310USA002563

PATIENT
  Age: 48 Year
  Sex: Female

DRUGS (2)
  1. JANUVIA [Suspect]
     Indication: TYPE 2 DIABETES MELLITUS
     Dosage: 100 MG, QD
     Route: 048
     Dates: start: 20131002
  2. PREMARIN [Concomitant]
     Dosage: UNK

REACTIONS (1)
  - Muscle tightness [Not Recovered/Not Resolved]
